FAERS Safety Report 12571304 (Version 1)
Quarter: 2016Q3

REPORT INFORMATION
  Report Type: Spontaneous
  Country: US (occurrence: US)
  Receive Date: 20160719
  Receipt Date: 20160719
  Transmission Date: 20161109
  Serious: No
  Sender: FDA-Public Use
  Company Number: US-BAYER-2016-140190

PATIENT
  Age: 74 Year
  Sex: Female
  Weight: 54.42 kg

DRUGS (4)
  1. SYNTHROID [Concomitant]
     Active Substance: LEVOTHYROXINE SODIUM
     Dosage: UNK
  2. METAMUCIL [Concomitant]
     Active Substance: PLANTAGO SEED
     Dosage: UNK
  3. VYTORIN [Concomitant]
     Active Substance: EZETIMIBE\SIMVASTATIN
     Dosage: UNK
  4. MIRALAX [Suspect]
     Active Substance: POLYETHYLENE GLYCOL 3350
     Indication: CONSTIPATION
     Dosage: 1 DF, QD
     Route: 048
     Dates: start: 2016, end: 20160713

REACTIONS (5)
  - Rash [Not Recovered/Not Resolved]
  - Eye swelling [Recovered/Resolved]
  - Swelling face [None]
  - Product use issue [None]
  - Eye pruritus [Recovered/Resolved]

NARRATIVE: CASE EVENT DATE: 201606
